FAERS Safety Report 5828119-9 (Version None)
Quarter: 2008Q3

REPORT INFORMATION
  Report Type: 
  Country: None (occurrence: None)
  Receive Date: 20080729
  Receipt Date: 20080729
  Transmission Date: 20090109
  Serious: Yes (Death, Hospitalization)
  Sender: FDA-Public Use
  Company Number: None

PATIENT
  Sex: Female
  Weight: 68.0396 kg

DRUGS (2)
  1. TALECRIS IMMUNE GLOBULIN GAMASTAN S/D [Suspect]
     Indication: ACCIDENTAL EXPOSURE
     Dosage: 1.4 CC 1 X IM
     Route: 030
     Dates: start: 20080709
  2. TALECRIS IMMUNE GLOBULIN GAMASTAN S/D [Suspect]
     Indication: PROPHYLAXIS
     Dosage: 1.4 CC 1 X IM
     Route: 030
     Dates: start: 20080709

REACTIONS (1)
  - RESPIRATORY DISORDER [None]
